FAERS Safety Report 8849624 (Version 1)
Quarter: 2012Q4

REPORT INFORMATION
  Report Type: 
  Country: US (occurrence: US)
  Receive Date: 20121019
  Receipt Date: 20121019
  Transmission Date: 20130627
  Serious: Yes (Other)
  Sender: FDA-Public Use
  Company Number: US-BRISTOL-MYERS SQUIBB COMPANY-17029513

PATIENT
  Age: 67 Year
  Sex: Male
  Weight: 76 kg

DRUGS (1)
  1. ERBITUX [Suspect]
     Indication: HEAD AND NECK CANCER
     Dosage: between Aug-17Sep2012, 6 weekly treatments
     Dates: start: 201208

REACTIONS (6)
  - Atelectasis [Unknown]
  - Dysphonia [Unknown]
  - Muscle spasms [Unknown]
  - Diarrhoea [Unknown]
  - Dry skin [Unknown]
  - Procedural haemorrhage [Unknown]
